FAERS Safety Report 15720377 (Version 1)
Quarter: 2018Q4

REPORT INFORMATION
  Report Type: Spontaneous
  Country: IR (occurrence: IR)
  Receive Date: 20181213
  Receipt Date: 20181213
  Transmission Date: 20190205
  Serious: Yes (Hospitalization)
  Sender: FDA-Public Use
  Company Number: IR-MYLANLABS-2018M1090957

PATIENT
  Age: 21 Year
  Sex: Female
  Weight: 67 kg

DRUGS (16)
  1. MEFENAMIC ACID. [Interacting]
     Active Substance: MEFENAMIC ACID
     Indication: MENORRHAGIA
     Route: 065
  2. MIDAZOLAM [Concomitant]
     Active Substance: MIDAZOLAM HYDROCHLORIDE
     Indication: HYPOTENSIVE ANAESTHESIA PROCEDURE
     Route: 065
  3. EPINEPHRINE. [Concomitant]
     Active Substance: EPINEPHRINE
     Indication: VASOCONSTRICTION
     Dosage: GIVEN WITH LIDOCAINE AT 1:80,000
     Route: 065
  4. REMIFENTANIL [Concomitant]
     Active Substance: REMIFENTANIL
     Indication: HYPOTENSIVE ANAESTHESIA PROCEDURE
     Route: 065
  5. LIDOCAINE. [Concomitant]
     Active Substance: LIDOCAINE
     Indication: HYPOTENSIVE ANAESTHESIA PROCEDURE
     Route: 065
  6. CEFAZOLIN [Concomitant]
     Active Substance: CEFAZOLIN
     Indication: ANTIBIOTIC THERAPY
     Dosage: 1 HOUR PRE-OPERATIVELY AND EVERY 6 HOURS POSTOPERATIVELY
     Route: 065
  7. DEXAMETHASONE. [Concomitant]
     Active Substance: DEXAMETHASONE
     Indication: OEDEMA
     Dosage: 1 HOUR PREOPERATIVELY, EVERY 4 HOURS INTRAOPERATIVELY, AND EVERY 8 HOURS POSTOPERATIVELY
     Route: 042
  8. PROPOFOL. [Concomitant]
     Active Substance: PROPOFOL
     Indication: HYPOTENSIVE ANAESTHESIA PROCEDURE
     Dosage: 100 TO 200 MICROGRAM/KG PER MINUTE
     Route: 041
  9. DEXAMETHASONE. [Concomitant]
     Active Substance: DEXAMETHASONE
     Indication: PAIN
  10. ATROPINE. [Concomitant]
     Active Substance: ATROPINE
     Indication: ANAESTHESIA REVERSAL
     Route: 042
  11. LIDOCAINE. [Concomitant]
     Active Substance: LIDOCAINE
     Indication: LOCAL ANAESTHESIA
     Dosage: GIVEN WITH EPINEPHRINE
     Route: 065
  12. ATRACURIUM [Concomitant]
     Active Substance: ATRACURIUM
     Indication: NEUROMYOPATHY
     Route: 065
  13. DEXAMETHASONE. [Concomitant]
     Active Substance: DEXAMETHASONE
     Indication: INFLAMMATION
  14. NEOSTIGMINE. [Concomitant]
     Active Substance: NEOSTIGMINE METHYLSULFATE
     Indication: ANAESTHESIA REVERSAL
     Route: 042
  15. TRANEXAMIC ACID. [Suspect]
     Active Substance: TRANEXAMIC ACID
     Indication: HAEMORRHAGE PROPHYLAXIS
     Dosage: FORMULATION: VIAL
     Route: 042
  16. RINGER^S SOLUTION                  /03112001/ [Concomitant]
     Indication: DEHYDRATION
     Dosage: 3 TO 4ML/KG PER HOUR
     Route: 065

REACTIONS (2)
  - Deep vein thrombosis [Recovered/Resolved]
  - Drug interaction [Recovered/Resolved]
